FAERS Safety Report 11883444 (Version 3)
Quarter: 2016Q3

REPORT INFORMATION
  Report Type: Report from Study
  Country: US (occurrence: US)
  Receive Date: 20151231
  Receipt Date: 20160713
  Transmission Date: 20161109
  Serious: Yes (Other)
  Sender: FDA-Public Use
  Company Number: US-ACTELION-A-NJ2015-129254

PATIENT
  Age: 66 Year
  Sex: Female

DRUGS (5)
  1. OPSUMIT [Suspect]
     Active Substance: MACITENTAN
     Indication: PULMONARY HYPERTENSION
     Dosage: 10 MG, UNK
     Route: 048
     Dates: start: 20151130
  2. WARFARIN [Concomitant]
     Active Substance: WARFARIN
  3. RIOCIGUAT [Concomitant]
     Active Substance: RIOCIGUAT
     Dosage: 1.5 MG, UNK
  4. RIOCIGUAT [Concomitant]
     Active Substance: RIOCIGUAT
     Dosage: 2.0 MG, UNK
  5. RIOCIGUAT [Concomitant]
     Active Substance: RIOCIGUAT
     Dosage: 1.5 MG, UNK

REACTIONS (10)
  - Mineral supplementation [Unknown]
  - Blood pressure decreased [Unknown]
  - Oedema peripheral [Unknown]
  - Rash [Unknown]
  - Mastitis [Unknown]
  - Influenza [Unknown]
  - Haemoglobin decreased [Unknown]
  - Breast cancer [Unknown]
  - Transfusion [Unknown]
  - Dyspnoea [Unknown]
